FAERS Safety Report 17722181 (Version 1)
Quarter: 2020Q2

REPORT INFORMATION
  Report Type: Spontaneous
  Country: AT (occurrence: AT)
  Receive Date: 20200429
  Receipt Date: 20200429
  Transmission Date: 20200714
  Serious: Yes (Other)
  Sender: FDA-Public Use
  Company Number: AT-ELI_LILLY_AND_COMPANY-AT202004007513

PATIENT
  Age: 72 Year
  Sex: Female
  Weight: 67 kg

DRUGS (6)
  1. FORSTEO 250UG/ML [Suspect]
     Active Substance: TERIPARATIDE
     Dosage: UNK UNK, DAILY
     Route: 058
     Dates: start: 20190804, end: 20200207
  2. FORSTEO 250UG/ML [Suspect]
     Active Substance: TERIPARATIDE
     Indication: OSTEOPOROSIS
     Dosage: UNK UNK, DAILY
     Route: 058
     Dates: start: 201606
  3. HALCION [Concomitant]
     Active Substance: TRIAZOLAM
     Indication: SLEEP DISORDER
     Dosage: 0.5 DOSAGE FORM, UNKNOWN
  4. OLEOVIT [COLECALCIFEROL-CHOLESTERIN] [Concomitant]
     Indication: OSTEOPOROSIS
     Dosage: UNK UNK, 10 DROPS/DAY
  5. EUTHYROX [Concomitant]
     Active Substance: LEVOTHYROXINE SODIUM
     Indication: BASEDOW^S DISEASE
     Dosage: 7.5 UG, UNKNOWN
  6. OLEOVIT [COLECALCIFEROL-CHOLESTERIN] [Concomitant]
     Indication: VITAMIN D DEFICIENCY

REACTIONS (6)
  - Visual impairment [Recovered/Resolved]
  - Eye haemorrhage [Recovered/Resolved]
  - Basedow^s disease [Unknown]
  - Eye swelling [Recovered/Resolved]
  - Lacrimation increased [Recovered/Resolved]
  - Muscle spasms [Recovered/Resolved]

NARRATIVE: CASE EVENT DATE: 20190808
